FAERS Safety Report 6378057-0 (Version None)
Quarter: 2009Q3

REPORT INFORMATION
  Report Type: 
  Country: None (occurrence: None)
  Receive Date: 20090925
  Receipt Date: 20090915
  Transmission Date: 20100115
  Serious: Yes (Other)
  Sender: FDA-Public Use
  Company Number: JP-ABBOTT-09P-087-0599248-00

PATIENT
  Age: 73 Year
  Sex: Male

DRUGS (4)
  1. LEUPLIN SR FOR INJECTION 11.25 MG [Suspect]
     Indication: PROSTATE CANCER STAGE II
     Route: 058
     Dates: start: 20080624, end: 20090330
  2. LEUPLIN SR FOR INJECTION 11.25 MG [Suspect]
     Dates: start: 20071204, end: 20080527
  3. LEUPLIN SR FOR INJECTION 11.25 MG [Suspect]
     Dates: start: 20090622
  4. CASODEX [Concomitant]
     Indication: PROSTATE CANCER STAGE II
     Route: 048
     Dates: start: 20071120, end: 20081006

REACTIONS (1)
  - INTERSTITIAL LUNG DISEASE [None]
